FAERS Safety Report 14487831 (Version 2)
Quarter: 2018Q1

REPORT INFORMATION
  Report Type: Report from Study
  Country: IL (occurrence: IL)
  Receive Date: 20180205
  Receipt Date: 20180221
  Transmission Date: 20180509
  Serious: Yes (Death)
  Sender: FDA-Public Use
  Company Number: IL-TEVA-2018-IL-853381

PATIENT
  Age: 62 Year
  Sex: Male

DRUGS (16)
  1. MITOXANTRONE [Suspect]
     Active Substance: MITOXANTRONE HYDROCHLORIDE
     Indication: B-CELL LYMPHOMA
     Dosage: RITUXIMAB WITH THREE CYCLES OF THE FLUDARABINE, CYCLOPHOSPHAMIDE, AND MITOXANTRONE REGIMEN
     Route: 065
  2. CYTARABINE. [Suspect]
     Active Substance: CYTARABINE
     Indication: LYMPHOMA
     Dosage: IN 2010, 2 CYCLES OF RITUXIMAB AND ESHAP
     Route: 065
     Dates: start: 2010
  3. RITUXIMAB. [Suspect]
     Active Substance: RITUXIMAB
     Indication: B-CELL LYMPHOMA
     Dosage: SIX CYCLES OF R-CHOP
     Route: 065
     Dates: start: 2005
  4. RITUXIMAB. [Suspect]
     Active Substance: RITUXIMAB
     Indication: B-CELL LYMPHOMA
     Dosage: IN 2010, 2 CYCLES OF RITUXIMAB AND ESHAP
     Route: 065
     Dates: start: 2010
  5. CYCLOPHOSPHAMIDE. [Suspect]
     Active Substance: CYCLOPHOSPHAMIDE
     Indication: B-CELL LYMPHOMA
     Dosage: RITUXIMAB WITH THREE CYCLES OF THE FLUDARABINE, CYCLOPHOSPHAMIDE, AND MITOXANTRONE REGIMEN
     Route: 065
  6. RITUXIMAB. [Suspect]
     Active Substance: RITUXIMAB
     Indication: B-CELL LYMPHOMA
     Dosage: RITUXIMAB WITH THREE CYCLES OF THE FLUDARABINE, CYCLOPHOSPHAMIDE, AND MITOXANTRONE REGIMEN
     Route: 065
  7. CYCLOPHOSPHAMIDE. [Suspect]
     Active Substance: CYCLOPHOSPHAMIDE
     Indication: B-CELL LYMPHOMA
     Dosage: SIX CYCLES OF R-CHOP
     Route: 065
     Dates: start: 2005
  8. PREDNISONE. [Suspect]
     Active Substance: PREDNISONE
     Indication: LYMPHOMA
     Dosage: IN 2010, 2 CYCLES OF RITUXIMAB AND ESHAP
     Route: 065
     Dates: start: 2010
  9. FLUDARABINE [Suspect]
     Active Substance: FLUDARABINE PHOSPHATE
     Indication: B-CELL LYMPHOMA
     Dosage: RITUXIMAB WITH THREE CYCLES OF THE FLUDARABINE, CYCLOPHOSPHAMIDE, AND MITOXANTRONE REGIMEN
     Route: 065
  10. VINCRISTINE [Suspect]
     Active Substance: VINCRISTINE
     Indication: B-CELL LYMPHOMA
     Dosage: SIX CYCLES OF R-CHOP
     Route: 065
     Dates: start: 2005
  11. BENDAMUSTINE [Suspect]
     Active Substance: BENDAMUSTINE
     Indication: LYMPHOMA
     Dosage: BENDAMUSTINE AND RITUXIMAB (FIVE CYCLES)
     Route: 065
  12. ETOPOSIDE. [Suspect]
     Active Substance: ETOPOSIDE
     Indication: LYMPHOMA
     Dosage: IN 2010, 2 CYCLES OF RITUXIMAB AND ESHAP
     Route: 065
     Dates: start: 2010
  13. RITUXIMAB. [Suspect]
     Active Substance: RITUXIMAB
     Indication: B-CELL LYMPHOMA
     Dosage: BENDAMUSTINE AND RITUXIMAB (FIVE CYCLES)
     Route: 065
  14. PREDNISONE. [Suspect]
     Active Substance: PREDNISONE
     Indication: B-CELL LYMPHOMA
     Dosage: SIX CYCLES OF R-CHOP
     Route: 065
     Dates: start: 2005
  15. CISPLATIN. [Suspect]
     Active Substance: CISPLATIN
     Indication: LYMPHOMA
     Dosage: IN 2010, 2 CYCLES OF RITUXIMAB AND ESHAP
     Route: 065
     Dates: start: 2010
  16. ADRIAMYCIN [Suspect]
     Active Substance: DOXORUBICIN HYDROCHLORIDE
     Indication: B-CELL LYMPHOMA
     Dosage: SIX CYCLES OF R-CHOP
     Route: 065
     Dates: start: 2005

REACTIONS (1)
  - Central nervous system enteroviral infection [Fatal]
